FAERS Safety Report 19435712 (Version 2)
Quarter: 2021Q2

REPORT INFORMATION
  Report Type: Report from Study
  Country: None (occurrence: US)
  Receive Date: 20210618
  Receipt Date: 20210630
  Transmission Date: 20210717
  Serious: Yes (Hospitalization)
  Sender: FDA-Public Use
  Company Number: US-ABBVIE-21P-163-3944316-00

PATIENT
  Sex: Male

DRUGS (4)
  1. VENETOCLAX. [Suspect]
     Active Substance: VENETOCLAX
     Indication: CHRONIC LYMPHOCYTIC LEUKAEMIA
     Route: 048
     Dates: end: 20200921
  2. IBRUTINIB [Suspect]
     Active Substance: IBRUTINIB
     Indication: CHRONIC LYMPHOCYTIC LEUKAEMIA
     Dosage: 3 CYCLES OF MONOTHERAPY AND THEN 24 CYCLES WITH VENETOCLAX
     Route: 048
     Dates: start: 20180827, end: 20200921
  3. VENETOCLAX. [Suspect]
     Active Substance: VENETOCLAX
     Dosage: ADDITIONAL 12 CYCLES OF IBRUTINIB AND VENETOCLAX COMBINATION
     Route: 048
     Dates: start: 20201021
  4. IBRUTINIB [Suspect]
     Active Substance: IBRUTINIB
     Dosage: ADDITIONAL 12 CYCLES OF IBRUTINIB AND VENETOCLAX COMBINATION
     Route: 048
     Dates: start: 20201021

REACTIONS (1)
  - Skin infection [Recovered/Resolved]

NARRATIVE: CASE EVENT DATE: 20210530
